FAERS Safety Report 8116703-1 (Version None)
Quarter: 2012Q1

REPORT INFORMATION
  Report Type: 
  Country: None (occurrence: None)
  Receive Date: 20120206
  Receipt Date: 20120127
  Transmission Date: 20120608
  Serious: Yes (Hospitalization, Other)
  Sender: FDA-Public Use
  Company Number: PHEH2012US002551

PATIENT
  Sex: Male

DRUGS (1)
  1. VALTURNA [Suspect]
     Indication: HYPERTENSION
     Dosage: 1 DF (300/320), QD
     Dates: start: 20100812

REACTIONS (6)
  - INFECTION [None]
  - PAIN IN EXTREMITY [None]
  - CELLULITIS [None]
  - RENAL FAILURE ACUTE [None]
  - GLOMERULONEPHRITIS [None]
  - OEDEMA PERIPHERAL [None]
